FAERS Safety Report 13000886 (Version 1)
Quarter: 2016Q4

REPORT INFORMATION
  Report Type: Spontaneous
  Country: US (occurrence: US)
  Receive Date: 20161206
  Receipt Date: 20161206
  Transmission Date: 20170207
  Serious: Yes (Other)
  Sender: FDA-Public Use
  Company Number: US-ROCHE-1861530

PATIENT
  Age: 50 Year
  Sex: Male

DRUGS (1)
  1. HERCEPTIN [Suspect]
     Active Substance: TRASTUZUMAB
     Indication: OESOPHAGEAL CARCINOMA
     Dosage: HEAVY DOSES FOR 6 WEEKS
     Route: 065

REACTIONS (2)
  - Weight decreased [Unknown]
  - Muscle atrophy [Unknown]
